FAERS Safety Report 14204532 (Version 1)
Quarter: 2017Q4

REPORT INFORMATION
  Report Type: Spontaneous
  Country: US (occurrence: US)
  Receive Date: 20171120
  Receipt Date: 20171120
  Transmission Date: 20180321
  Serious: Yes (Other)
  Sender: FDA-Public Use
  Company Number: US-LEXICON PHARMACEUTICALS, INC-17-1606-01162

PATIENT
  Sex: Female

DRUGS (1)
  1. TELOTRISTAT ETHYL [Suspect]
     Active Substance: TELOTRISTAT ETHYL
     Indication: CARCINOID SYNDROME
     Route: 048
     Dates: start: 20170623

REACTIONS (15)
  - Loss of personal independence in daily activities [Unknown]
  - Disease progression [Unknown]
  - Metastasis [Unknown]
  - Hyperlipidaemia [Unknown]
  - Blood chloride decreased [Unknown]
  - Flushing [Unknown]
  - Blood creatinine decreased [Unknown]
  - Hypertension [Unknown]
  - Insomnia [Unknown]
  - Lymphadenopathy [Unknown]
  - Blood glucose increased [Unknown]
  - Hepatic steatosis [Unknown]
  - Neutrophil count increased [Unknown]
  - Anxiety [Unknown]
  - Depression [Unknown]

NARRATIVE: CASE EVENT DATE: 2017
